FAERS Safety Report 8553368-9 (Version None)
Quarter: 2012Q3

REPORT INFORMATION
  Report Type: 
  Country: None (occurrence: None)
  Receive Date: 20120731
  Receipt Date: 20120723
  Transmission Date: 20120928
  Serious: Yes (Hospitalization, Other)
  Sender: FDA-Public Use
  Company Number: JP-ROCHE-1089367

PATIENT
  Age: 75 Year
  Sex: Male

DRUGS (2)
  1. REBETOL [Suspect]
     Indication: HEPATITIS C
     Dosage: DOSAGE IS UNCERTAIN.
     Route: 048
     Dates: start: 20061201
  2. PEG-INTRON [Suspect]
     Indication: HEPATITIS C
     Dosage: DOSAGE IS UNCERTAIN.
     Route: 058
     Dates: start: 20061201

REACTIONS (5)
  - PLATELET COUNT DECREASED [None]
  - HENOCH-SCHONLEIN PURPURA [None]
  - OROPHARYNGEAL PAIN [None]
  - PYREXIA [None]
  - RHABDOMYOLYSIS [None]
